FAERS Safety Report 6145014-9 (Version None)
Quarter: 2009Q2

REPORT INFORMATION
  Report Type: 
  Country: None (occurrence: None)
  Receive Date: 20090402
  Receipt Date: 20090402
  Transmission Date: 20091009
  Serious: Yes (Other)
  Sender: FDA-Public Use
  Company Number: None

PATIENT
  Sex: Female
  Weight: 58 kg

DRUGS (1)
  1. HUMATE-P [Suspect]
     Indication: INTRAVENTRICULAR HAEMORRHAGE
     Dosage: 2200 UNITS EVERY 12 HOURS IV
     Route: 042
     Dates: start: 20081218, end: 20090401

REACTIONS (3)
  - CEREBRAL INFARCTION [None]
  - CHEST PAIN [None]
  - DYSPNOEA [None]
